FAERS Safety Report 4721553-X (Version None)
Quarter: 2005Q3

REPORT INFORMATION
  Report Type: 
  Country: None (occurrence: None)
  Receive Date: 20050721
  Receipt Date: 20041122
  Transmission Date: 20060218
  Serious: No
  Sender: FDA-Public Use
  Company Number: US-BRISTOL-MYERS SQUIBB COMPANY-12772562

PATIENT
  Age: 63 Year
  Sex: Female
  Weight: 134 kg

DRUGS (7)
  1. COUMADIN [Suspect]
     Indication: EMBOLISM
     Dosage: INITIATED WARFARIN SODIUM APPROXIMATELY 5 OR 6 YEARS AGO. TAKES 15 MG (1-10MG AND 1-5MG TABLET)
     Route: 048
  2. COUMADIN [Suspect]
     Indication: DEEP VEIN THROMBOSIS
     Dosage: INITIATED WARFARIN SODIUM APPROXIMATELY 5 OR 6 YEARS AGO. TAKES 15 MG (1-10MG AND 1-5MG TABLET)
     Route: 048
  3. GLUCOPHAGE XR [Concomitant]
  4. GLUCOTROL [Concomitant]
  5. LIPITOR [Concomitant]
  6. TIAZAC [Concomitant]
  7. ACEON [Concomitant]

REACTIONS (1)
  - THERAPEUTIC RESPONSE DECREASED [None]
